FAERS Safety Report 6064138-8 (Version None)
Quarter: 2009Q1

REPORT INFORMATION
  Report Type: 
  Country: None (occurrence: None)
  Receive Date: 20090203
  Receipt Date: 20090203
  Transmission Date: 20090719
  Serious: Yes (Other)
  Sender: FDA-Public Use
  Company Number: None

PATIENT
  Age: 66 Year
  Sex: Female

DRUGS (1)
  1. MOMETASONE FUROATE [Suspect]
     Indication: ECZEMA
     Dosage: APPLY A THIN FILM TO THE AFFECTED SKIN AREAS BY TOPICAL ROUTE TWO TIMES PER DAY FOR 90 DAYS
     Route: 061

REACTIONS (2)
  - DRUG INEFFECTIVE [None]
  - PRODUCT QUALITY ISSUE [None]
